FAERS Safety Report 7339620-3 (Version None)
Quarter: 2011Q1

REPORT INFORMATION
  Report Type: 
  Country: None (occurrence: None)
  Receive Date: 20110308
  Receipt Date: 20110224
  Transmission Date: 20110831
  Serious: Yes (Other)
  Sender: FDA-Public Use
  Company Number: JP-MERCK-1102USA03351

PATIENT
  Age: 78 Year
  Sex: Male
  Weight: 47 kg

DRUGS (6)
  1. LASIX [Suspect]
     Indication: CARDIAC FAILURE
     Route: 048
     Dates: start: 20110106, end: 20110201
  2. JANUVIA [Suspect]
     Indication: DIABETES MELLITUS
     Route: 048
     Dates: start: 20110106, end: 20110129
  3. ALDACTONE [Suspect]
     Indication: BLOOD POTASSIUM DECREASED
     Route: 048
     Dates: start: 20110106, end: 20110201
  4. ASPIRIN [Suspect]
     Indication: MYOCARDIAL INFARCTION
     Route: 048
     Dates: start: 20110106, end: 20110201
  5. COZAAR [Suspect]
     Indication: HYPERTENSION
     Route: 048
     Dates: start: 20110107, end: 20110201
  6. SLOW-K [Suspect]
     Indication: BLOOD POTASSIUM DECREASED
     Route: 048
     Dates: start: 20110106, end: 20110201

REACTIONS (1)
  - PANCREATITIS ACUTE [None]
